FAERS Safety Report 21248267 (Version 1)
Quarter: 2022Q3

REPORT INFORMATION
  Report Type: Spontaneous
  Country: US (occurrence: US)
  Receive Date: 20220824
  Receipt Date: 20220824
  Transmission Date: 20221026
  Serious: No
  Sender: FDA-Public Use
  Company Number: US-NOVARTISTESTPH-NVSC2022US188269

PATIENT
  Sex: Female

DRUGS (1)
  1. PROMACTA [Suspect]
     Active Substance: ELTROMBOPAG OLAMINE
     Indication: Immune thrombocytopenia
     Dosage: 50 MG, QD
     Route: 048
     Dates: start: 202206

REACTIONS (7)
  - Abdominal discomfort [Unknown]
  - Muscle tightness [Unknown]
  - Abdominal distension [Unknown]
  - Constipation [Unknown]
  - Feeling jittery [Unknown]
  - Flatulence [Unknown]
  - Somnolence [Unknown]
